FAERS Safety Report 5460480-X (Version None)
Quarter: 2007Q3

REPORT INFORMATION
  Report Type: 
  Country: None (occurrence: None)
  Receive Date: 20070919
  Receipt Date: 20070723
  Transmission Date: 20080115
  Serious: No
  Sender: FDA-Public Use
  Company Number: US-ASTRAZENECA-2007UW17819

PATIENT
  Age: 65 Year
  Sex: Male
  Weight: 81.6 kg

DRUGS (5)
  1. SEROQUEL [Suspect]
     Indication: SCHIZOPHRENIA
     Dosage: 200 MG HS AND 100 MG AT 4:00 P.M.
     Route: 048
     Dates: start: 19970101
  2. THORAZINE [Concomitant]
  3. WELLBUTRIN [Concomitant]
  4. SYNTHROID [Concomitant]
  5. LIPITOR [Concomitant]

REACTIONS (2)
  - EUPHORIC MOOD [None]
  - FEELING ABNORMAL [None]
